FAERS Safety Report 6804403-7 (Version None)
Quarter: 2010Q2

REPORT INFORMATION
  Report Type: 
  Country: None (occurrence: None)
  Receive Date: 20100628
  Receipt Date: 20070531
  Transmission Date: 20101027
  Serious: No
  Sender: FDA-Public Use
  Company Number: US-PFIZER INC-2007018328

PATIENT
  Sex: Female
  Weight: 58.97 kg

DRUGS (3)
  1. XALATAN [Suspect]
     Indication: GLAUCOMA
     Dosage: ONE DROP IN EYE
     Dates: start: 20070110
  2. SYNTHROID [Concomitant]
  3. ESTRADIOL [Concomitant]

REACTIONS (7)
  - DERMATITIS CONTACT [None]
  - EYELASH THICKENING [None]
  - EYELID IRRITATION [None]
  - EYELID OEDEMA [None]
  - HAIR TEXTURE ABNORMAL [None]
  - PRURITUS [None]
  - SKIN HYPERPIGMENTATION [None]
